FAERS Safety Report 9053855 (Version 1)
Quarter: 2013Q1

REPORT INFORMATION
  Report Type: Spontaneous
  Country: US (occurrence: None)
  Receive Date: 20130130
  Receipt Date: 20130130
  Transmission Date: 20140127
  Serious: Yes (Other)
  Sender: FDA-Public Use
  Company Number: None

PATIENT
  Age: 30 Year
  Sex: Male
  Weight: 83.92 kg

DRUGS (1)
  1. SERTRALINE HYDROCHLORIDE [Suspect]
     Indication: PANIC DISORDER
     Route: 048
     Dates: start: 20130124, end: 20130126

REACTIONS (7)
  - Agitation [None]
  - Anxiety [None]
  - Depressed mood [None]
  - Product substitution issue [None]
  - Terminal insomnia [None]
  - Emotional distress [None]
  - Panic reaction [None]
